FAERS Safety Report 7987635-4 (Version None)
Quarter: 2011Q4

REPORT INFORMATION
  Report Type: 
  Country: None (occurrence: None)
  Receive Date: 20111216
  Receipt Date: 20101101
  Transmission Date: 20120403
  Serious: Yes (Other)
  Sender: FDA-Public Use
  Company Number: US-BRISTOL-MYERS SQUIBB COMPANY-15316003

PATIENT
  Sex: Female

DRUGS (1)
  1. ABILIFY [Suspect]
     Dosage: 1 DF= 10-15MG/DAY: 5MG:MAR10 10MG:1 WEEK LATER 15MG:07APR10 STOPPED ON 10MAY2010
     Dates: start: 20100301, end: 20100510

REACTIONS (1)
  - DERMATITIS EXFOLIATIVE [None]
